FAERS Safety Report 8459557-6 (Version None)
Quarter: 2012Q2

REPORT INFORMATION
  Report Type: 
  Country: None (occurrence: None)
  Receive Date: 20120622
  Receipt Date: 20120613
  Transmission Date: 20120825
  Serious: Yes (Hospitalization)
  Sender: FDA-Public Use
  Company Number: DE-JNJFOC-20120606685

PATIENT
  Age: 29 Year
  Sex: Female

DRUGS (5)
  1. RISPERDAL [Suspect]
     Route: 048
     Dates: start: 20111004
  2. RISPERDAL [Suspect]
     Indication: PRODUCT USED FOR UNKNOWN INDICATION
     Route: 048
     Dates: start: 20111002, end: 20111003
  3. RISPERDAL [Suspect]
     Route: 048
     Dates: start: 20110927, end: 20111001
  4. TRUXAL [Concomitant]
     Route: 048
     Dates: start: 20111002
  5. INVEGA [Suspect]
     Indication: PRODUCT USED FOR UNKNOWN INDICATION
     Route: 048
     Dates: start: 20111005, end: 20111114

REACTIONS (3)
  - GALACTORRHOEA [None]
  - BLOOD PROLACTIN INCREASED [None]
  - BREAST DISCOMFORT [None]
